FAERS Safety Report 7734635-5 (Version None)
Quarter: 2011Q3

REPORT INFORMATION
  Report Type: 
  Country: None (occurrence: None)
  Receive Date: 20110907
  Receipt Date: 20110829
  Transmission Date: 20111222
  Serious: Yes (Hospitalization)
  Sender: FDA-Public Use
  Company Number: US-MERCK-1108USA03507

PATIENT
  Age: 69 Year
  Sex: Female

DRUGS (7)
  1. ZOCOR [Suspect]
     Indication: BLOOD CHOLESTEROL INCREASED
     Route: 048
     Dates: end: 20110819
  2. CYMBALTA [Concomitant]
     Route: 065
  3. OYST-CAL [Concomitant]
     Route: 065
  4. SPIRIVA [Concomitant]
     Route: 065
  5. ACTONEL [Concomitant]
     Route: 065
  6. POTASSIUM (UNSPECIFIED) [Concomitant]
     Route: 065
  7. GLYCOLAX [Concomitant]
     Route: 065

REACTIONS (2)
  - CARDIAC DISORDER [None]
  - LIVER DISORDER [None]
